FAERS Safety Report 12203244 (Version 1)
Quarter: 2016Q1

REPORT INFORMATION
  Report Type: Spontaneous
  Country: US (occurrence: None)
  Receive Date: 20160321
  Receipt Date: 20160321
  Transmission Date: 20160526
  Serious: Yes (Hospitalization)
  Sender: FDA-Public Use
  Company Number: None

PATIENT
  Age: 65 Year
  Sex: Female

DRUGS (1)
  1. ENBREL [Suspect]
     Active Substance: ETANERCEPT
     Indication: PRODUCT USED FOR UNKNOWN INDICATION
     Route: 058
     Dates: start: 20120802, end: 20160317

REACTIONS (4)
  - Peripheral swelling [None]
  - Injection site infection [None]
  - Skin ulcer [None]
  - Drug hypersensitivity [None]

NARRATIVE: CASE EVENT DATE: 20160317
